FAERS Safety Report 5040726-2 (Version None)
Quarter: 2006Q3

REPORT INFORMATION
  Report Type: 
  Country: None (occurrence: None)
  Receive Date: 20060703
  Receipt Date: 20060620
  Transmission Date: 20061208
  Serious: Yes (Other)
  Sender: FDA-Public Use
  Company Number: PHFR2006GB02037

PATIENT
  Age: 3 Week

DRUGS (1)
  1. TEGRETOL [Suspect]
     Dosage: UNK, UNK

REACTIONS (2)
  - DRUG EXPOSURE VIA BREAST MILK [None]
  - POOR WEIGHT GAIN NEONATAL [None]
